FAERS Safety Report 4643032-0 (Version None)
Quarter: 2005Q2

REPORT INFORMATION
  Report Type: 
  Country: None (occurrence: None)
  Receive Date: 20050422
  Receipt Date: 20050218
  Transmission Date: 20051028
  Serious: Yes (Disabling, Other)
  Sender: FDA-Public Use
  Company Number: 2004079234

PATIENT
  Age: 83 Year
  Sex: Female

DRUGS (1)
  1. NEURONTIN [Suspect]
     Indication: BURNING SENSATION
     Dosage: 1800 MG (600 MG, 3 IN 1 D), ORAL
     Route: 048
     Dates: start: 20040101

REACTIONS (6)
  - BALANCE DISORDER [None]
  - DELIRIUM [None]
  - DEMENTIA [None]
  - DIZZINESS [None]
  - FALL [None]
  - SOMNOLENCE [None]
